FAERS Safety Report 7659950-5 (Version None)
Quarter: 2011Q3

REPORT INFORMATION
  Report Type: 
  Country: None (occurrence: None)
  Receive Date: 20110805
  Receipt Date: 20110727
  Transmission Date: 20111222
  Serious: Yes (Hospitalization, Other)
  Sender: FDA-Public Use
  Company Number: US-BAYER-201033319NA

PATIENT
  Age: 38 Year
  Sex: Female
  Weight: 73.923 kg

DRUGS (11)
  1. ADVIL LIQUI-GELS [Concomitant]
     Indication: HEADACHE
     Dosage: 200 MG, PRN
     Route: 048
  2. MULTI-VITAMINS [Concomitant]
     Dosage: UNK UNK, QD
     Route: 048
  3. RANITIDINE [Concomitant]
     Dosage: 150 MG, BID
  4. ETODOLAC [Concomitant]
     Dosage: 400 MG, BID
     Route: 048
     Dates: start: 20090213
  5. FLEXERIL [Concomitant]
     Dosage: 10 MG, UNK
     Route: 048
     Dates: start: 20090213
  6. YASMIN [Suspect]
     Indication: PRODUCT USED FOR UNKNOWN INDICATION
     Dosage: UNK
     Route: 048
     Dates: start: 20090214, end: 20090501
  7. MOTRIN [Concomitant]
     Indication: HEADACHE
     Dosage: 200 MG, PRN
  8. PROZAC [Concomitant]
     Dosage: 20 MG, UNK
     Dates: start: 20000101
  9. FERROUS SULFATE TAB [Concomitant]
     Dosage: 325 MG, TID
     Route: 048
  10. FLUOXETINE [Concomitant]
     Dosage: UNK UNK, QD
     Route: 048
  11. CLONAZEPAM [Concomitant]
     Dosage: 5 MG, UNK
     Route: 048
     Dates: start: 20050101

REACTIONS (2)
  - SUPERIOR SAGITTAL SINUS THROMBOSIS [None]
  - MENTAL DISORDER [None]
